FAERS Safety Report 7539949-X (Version None)
Quarter: 2011Q2

REPORT INFORMATION
  Report Type: 
  Country: None (occurrence: None)
  Receive Date: 20110603
  Receipt Date: 20110520
  Transmission Date: 20111010
  Serious: No
  Sender: FDA-Public Use
  Company Number: 11-032

PATIENT
  Age: 79 Year
  Sex: Female
  Weight: 77.1115 kg

DRUGS (11)
  1. PREMARIN [Concomitant]
  2. LIQUID POTASSIUM [Concomitant]
  3. ATENOLOL [Concomitant]
  4. BISACODYL [Suspect]
     Indication: CONSTIPATION
     Dosage: 1-3 TABLETS, DAILY, ORAL
     Route: 048
     Dates: start: 20110507
  5. TRAMADOL HCL [Concomitant]
  6. BUMETANIDE [Concomitant]
  7. LORATADINE [Concomitant]
  8. BISACODYL [Suspect]
  9. LEVOTHYROXINE SODIUM [Concomitant]
  10. VITAMIN B-12 [Concomitant]
  11. SHOT FOR ARTHRITIS [Concomitant]

REACTIONS (4)
  - DECREASED APPETITE [None]
  - VOMITING [None]
  - ABDOMINAL PAIN UPPER [None]
  - DYSGEUSIA [None]
